FAERS Safety Report 19685161 (Version 1)
Quarter: 2021Q3

REPORT INFORMATION
  Report Type: Spontaneous
  Country: US (occurrence: US)
  Receive Date: 20210811
  Receipt Date: 20210811
  Transmission Date: 20211014
  Serious: Yes (Other)
  Sender: FDA-Public Use
  Company Number: None

PATIENT
  Age: 45 Year
  Sex: Female
  Weight: 69.75 kg

DRUGS (1)
  1. DEXTROAMPHET SACCHARAT, AMPHET ASPARTATE, DEXTROAMPHET SULFATE AND AMPHET SULFAT [Suspect]
     Active Substance: AMPHETAMINE ASPARTATE\AMPHETAMINE SULFATE\DEXTROAMPHETAMINE SACCHARATE\DEXTROAMPHETAMINE SULFATE
     Indication: ATTENTION DEFICIT HYPERACTIVITY DISORDER
     Dosage: ??          QUANTITY:1 CAPSULE(S);?
     Route: 048
     Dates: start: 20210717, end: 20210731

REACTIONS (10)
  - Headache [None]
  - Sudden onset of sleep [None]
  - Vomiting [None]
  - Product substitution issue [None]
  - Fatigue [None]
  - Head injury [None]
  - Alopecia [None]
  - Loss of consciousness [None]
  - Drug ineffective [None]
  - Confusional state [None]

NARRATIVE: CASE EVENT DATE: 20210718
